FAERS Safety Report 22592559 (Version 1)
Quarter: 2023Q2

REPORT INFORMATION
  Report Type: Report from Study
  Country: EG (occurrence: EG)
  Receive Date: 20230613
  Receipt Date: 20230613
  Transmission Date: 20230721
  Serious: Yes (Other)
  Sender: FDA-Public Use
  Company Number: EG-002147023-NVSC2022EG176009

PATIENT
  Age: 47 Year
  Sex: Male

DRUGS (6)
  1. GILENYA [Suspect]
     Active Substance: FINGOLIMOD HYDROCHLORIDE
     Indication: Multiple sclerosis
     Dosage: 1 DOSAGE FORM (0.5 MG), QD
     Route: 065
     Dates: start: 20220409
  2. GAPTIN [Concomitant]
     Indication: Hypoaesthesia
     Dosage: 1 DOSAGE FORM (EVERY EVENIG)
     Route: 048
     Dates: start: 202206
  3. GAPTIN [Concomitant]
     Indication: Hypoaesthesia
     Dosage: 2 DOSAGE FORM (EVERY EVENING)
     Route: 048
     Dates: end: 202206
  4. OMEGA 3 PLUS [Concomitant]
     Indication: Product used for unknown indication
     Dosage: 1 DOSAGE FORM, QD
     Route: 048
     Dates: start: 202204
  5. COBAL [Concomitant]
     Indication: White blood cell count abnormal
     Dosage: 2 DOSAGE FORM(EVERY MORNING)
     Route: 048
     Dates: start: 202207
  6. TIZANIDINE [Concomitant]
     Active Substance: TIZANIDINE
     Indication: Urinary retention
     Dosage: 1 DOSAGE FORM (EVERY MORNING AND EVENING)
     Route: 048
     Dates: start: 202202

REACTIONS (4)
  - Decreased immune responsiveness [Unknown]
  - Hepatic enzyme increased [Recovered/Resolved]
  - White blood cell count decreased [Unknown]
  - Vision blurred [Not Recovered/Not Resolved]

NARRATIVE: CASE EVENT DATE: 20220409
